FAERS Safety Report 21944978 (Version 1)
Quarter: 2023Q1

REPORT INFORMATION
  Report Type: Other
  Country: US (occurrence: None)
  Receive Date: 20230202
  Receipt Date: 20230202
  Transmission Date: 20230417
  Serious: Yes (Other)
  Sender: FDA-Public Use
  Company Number: US-ROCHE-3270548

PATIENT
  Age: 43 Year
  Sex: Male

DRUGS (71)
  1. LUCENTIS [Suspect]
     Active Substance: RANIBIZUMAB
     Indication: Type 1 diabetes mellitus
     Route: 050
     Dates: start: 20150817
  2. LUCENTIS [Suspect]
     Active Substance: RANIBIZUMAB
  3. LUCENTIS [Suspect]
     Active Substance: RANIBIZUMAB
  4. LUCENTIS [Suspect]
     Active Substance: RANIBIZUMAB
     Indication: Diabetic retinopathy
     Route: 050
     Dates: start: 20150928
  5. LUCENTIS [Suspect]
     Active Substance: RANIBIZUMAB
  6. LUCENTIS [Suspect]
     Active Substance: RANIBIZUMAB
  7. LUCENTIS [Suspect]
     Active Substance: RANIBIZUMAB
     Indication: Macular oedema
     Route: 050
     Dates: start: 20170206
  8. LUCENTIS [Suspect]
     Active Substance: RANIBIZUMAB
  9. LUCENTIS [Suspect]
     Active Substance: RANIBIZUMAB
  10. LUCENTIS [Suspect]
     Active Substance: RANIBIZUMAB
     Route: 050
     Dates: start: 20170515
  11. LUCENTIS [Suspect]
     Active Substance: RANIBIZUMAB
  12. LUCENTIS [Suspect]
     Active Substance: RANIBIZUMAB
  13. LUCENTIS [Suspect]
     Active Substance: RANIBIZUMAB
     Route: 050
     Dates: start: 20170807
  14. LUCENTIS [Suspect]
     Active Substance: RANIBIZUMAB
  15. LUCENTIS [Suspect]
     Active Substance: RANIBIZUMAB
  16. LUCENTIS [Suspect]
     Active Substance: RANIBIZUMAB
     Route: 050
     Dates: start: 20171009
  17. LUCENTIS [Suspect]
     Active Substance: RANIBIZUMAB
  18. LUCENTIS [Suspect]
     Active Substance: RANIBIZUMAB
  19. LUCENTIS [Suspect]
     Active Substance: RANIBIZUMAB
     Route: 050
     Dates: start: 20171127
  20. LUCENTIS [Suspect]
     Active Substance: RANIBIZUMAB
  21. LUCENTIS [Suspect]
     Active Substance: RANIBIZUMAB
  22. LUCENTIS [Suspect]
     Active Substance: RANIBIZUMAB
     Route: 050
     Dates: start: 20180521
  23. LUCENTIS [Suspect]
     Active Substance: RANIBIZUMAB
  24. LUCENTIS [Suspect]
     Active Substance: RANIBIZUMAB
  25. LUCENTIS [Suspect]
     Active Substance: RANIBIZUMAB
     Route: 050
     Dates: start: 20180820
  26. LUCENTIS [Suspect]
     Active Substance: RANIBIZUMAB
  27. LUCENTIS [Suspect]
     Active Substance: RANIBIZUMAB
  28. LUCENTIS [Suspect]
     Active Substance: RANIBIZUMAB
     Route: 050
     Dates: start: 20181105
  29. LUCENTIS [Suspect]
     Active Substance: RANIBIZUMAB
  30. LUCENTIS [Suspect]
     Active Substance: RANIBIZUMAB
  31. LUCENTIS [Suspect]
     Active Substance: RANIBIZUMAB
     Route: 050
     Dates: start: 20190114
  32. LUCENTIS [Suspect]
     Active Substance: RANIBIZUMAB
  33. LUCENTIS [Suspect]
     Active Substance: RANIBIZUMAB
  34. LUCENTIS [Suspect]
     Active Substance: RANIBIZUMAB
     Route: 050
     Dates: start: 20190422
  35. LUCENTIS [Suspect]
     Active Substance: RANIBIZUMAB
  36. LUCENTIS [Suspect]
     Active Substance: RANIBIZUMAB
  37. LUCENTIS [Suspect]
     Active Substance: RANIBIZUMAB
     Route: 050
     Dates: start: 20190708
  38. LUCENTIS [Suspect]
     Active Substance: RANIBIZUMAB
  39. LUCENTIS [Suspect]
     Active Substance: RANIBIZUMAB
  40. LUCENTIS [Suspect]
     Active Substance: RANIBIZUMAB
     Route: 050
     Dates: start: 20190819
  41. LUCENTIS [Suspect]
     Active Substance: RANIBIZUMAB
  42. LUCENTIS [Suspect]
     Active Substance: RANIBIZUMAB
  43. LUCENTIS [Suspect]
     Active Substance: RANIBIZUMAB
     Route: 050
     Dates: start: 20200309
  44. LUCENTIS [Suspect]
     Active Substance: RANIBIZUMAB
  45. LUCENTIS [Suspect]
     Active Substance: RANIBIZUMAB
  46. LUCENTIS [Suspect]
     Active Substance: RANIBIZUMAB
     Route: 050
     Dates: start: 20200601
  47. LUCENTIS [Suspect]
     Active Substance: RANIBIZUMAB
  48. LUCENTIS [Suspect]
     Active Substance: RANIBIZUMAB
  49. LUCENTIS [Suspect]
     Active Substance: RANIBIZUMAB
     Route: 050
     Dates: start: 20200914
  50. LUCENTIS [Suspect]
     Active Substance: RANIBIZUMAB
  51. LUCENTIS [Suspect]
     Active Substance: RANIBIZUMAB
  52. LUCENTIS [Suspect]
     Active Substance: RANIBIZUMAB
     Route: 050
     Dates: start: 20210412
  53. LUCENTIS [Suspect]
     Active Substance: RANIBIZUMAB
  54. LUCENTIS [Suspect]
     Active Substance: RANIBIZUMAB
  55. LUCENTIS [Suspect]
     Active Substance: RANIBIZUMAB
     Route: 050
     Dates: start: 20210621
  56. LUCENTIS [Suspect]
     Active Substance: RANIBIZUMAB
  57. LUCENTIS [Suspect]
     Active Substance: RANIBIZUMAB
  58. LUCENTIS [Suspect]
     Active Substance: RANIBIZUMAB
     Route: 050
     Dates: start: 20211112
  59. LUCENTIS [Suspect]
     Active Substance: RANIBIZUMAB
  60. LUCENTIS [Suspect]
     Active Substance: RANIBIZUMAB
  61. LUCENTIS [Suspect]
     Active Substance: RANIBIZUMAB
     Route: 050
     Dates: start: 20220214
  62. LUCENTIS [Suspect]
     Active Substance: RANIBIZUMAB
  63. LUCENTIS [Suspect]
     Active Substance: RANIBIZUMAB
  64. LUCENTIS [Suspect]
     Active Substance: RANIBIZUMAB
     Route: 050
     Dates: start: 20220913
  65. LUCENTIS [Suspect]
     Active Substance: RANIBIZUMAB
  66. LUCENTIS [Suspect]
     Active Substance: RANIBIZUMAB
  67. LUCENTIS [Suspect]
     Active Substance: RANIBIZUMAB
     Route: 050
     Dates: start: 20230124
  68. LUCENTIS [Suspect]
     Active Substance: RANIBIZUMAB
  69. LUCENTIS [Suspect]
     Active Substance: RANIBIZUMAB
  70. AVASTIN [Suspect]
     Active Substance: BEVACIZUMAB
     Indication: Product used for unknown indication
     Route: 065
     Dates: start: 20170123
  71. AVASTIN [Suspect]
     Active Substance: BEVACIZUMAB
     Route: 065
     Dates: start: 20170313

REACTIONS (1)
  - End stage renal disease [Unknown]
